FAERS Safety Report 20186273 (Version 1)
Quarter: 2021Q4

REPORT INFORMATION
  Report Type: Spontaneous
  Country: GR (occurrence: GR)
  Receive Date: 20211215
  Receipt Date: 20211215
  Transmission Date: 20220303
  Serious: Yes (Other)
  Sender: FDA-Public Use
  Company Number: GR-ASTELLAS-2021US047908

PATIENT
  Sex: Male

DRUGS (2)
  1. GILTERITINIB [Suspect]
     Active Substance: GILTERITINIB
     Indication: Product used for unknown indication
     Dosage: 120 MG, ONCE DAILY (CYCLE 1)
     Route: 065
  2. GILTERITINIB [Suspect]
     Active Substance: GILTERITINIB
     Dosage: UNK UNK, UNKNOWN FREQ. (RESUMED GILTERITINIB AT HALD DOSE AFTER 10 DAYS)
     Route: 065

REACTIONS (1)
  - Thrombocytopenia [Unknown]
